FAERS Safety Report 9866885 (Version 1)
Quarter: 2014Q1

REPORT INFORMATION
  Report Type: Spontaneous
  Country: US (occurrence: None)
  Receive Date: 20140203
  Receipt Date: 20140203
  Transmission Date: 20141002
  Serious: No
  Sender: FDA-Public Use
  Company Number: None

PATIENT
  Age: 75 Year
  Sex: Female
  Weight: 77.11 kg

DRUGS (2)
  1. PENNSAID [Suspect]
     Indication: TENDONITIS
     Dosage: 10 DROPS FOUR TIMES DAILY APPLIED TO A SURFACE, USUALLY THE SKIN
     Dates: start: 20140115, end: 20140124
  2. PENNSAID [Suspect]
     Indication: BURSITIS
     Dosage: 10 DROPS FOUR TIMES DAILY APPLIED TO A SURFACE, USUALLY THE SKIN
     Dates: start: 20140115, end: 20140124

REACTIONS (1)
  - Myalgia [None]
